FAERS Safety Report 8432828-5 (Version None)
Quarter: 2012Q2

REPORT INFORMATION
  Report Type: 
  Country: None (occurrence: None)
  Receive Date: 20120613
  Receipt Date: 20120605
  Transmission Date: 20120825
  Serious: Yes (Hospitalization)
  Sender: FDA-Public Use
  Company Number: JP-EISAI INC-E7389-01987-CLI-JP

PATIENT
  Sex: Female
  Weight: 56 kg

DRUGS (23)
  1. INCREMIN [Concomitant]
     Route: 048
  2. RELIFEN [Concomitant]
     Route: 048
  3. LOXOMARIN [Concomitant]
     Route: 048
  4. MAGMITT [Concomitant]
     Indication: PROPHYLAXIS
     Route: 048
  5. CONCENTRATED RED CELLS [Concomitant]
     Route: 041
  6. GABAPENTIN [Concomitant]
     Route: 048
  7. PERAPRIN [Concomitant]
     Indication: PROPHYLAXIS
     Route: 048
  8. MORPHINE [Concomitant]
     Route: 048
  9. PROCHLORPERAZINE [Concomitant]
     Indication: PROPHYLAXIS
     Route: 048
  10. FLURBIPROFEN [Concomitant]
     Indication: PAIN PROPHYLAXIS
     Route: 041
  11. PACIF [Concomitant]
     Route: 048
  12. METRONIDAZOLE [Concomitant]
  13. SOLU-CORTEF [Concomitant]
     Route: 041
  14. LEVOFLOXACIN [Concomitant]
     Route: 048
  15. BESOFTEN [Concomitant]
  16. HALAVEN [Suspect]
     Indication: METASTASES TO SKIN
     Route: 041
     Dates: start: 20110921, end: 20111012
  17. GRANISETRON [Concomitant]
     Indication: PROPHYLAXIS
     Route: 041
  18. KAKKON-TO [Concomitant]
     Route: 048
  19. HALAVEN [Suspect]
     Route: 041
     Dates: start: 20111019
  20. AMOXICILLIN [Concomitant]
     Route: 048
  21. EURAX [Concomitant]
     Route: 065
  22. HALAVEN [Suspect]
     Indication: BREAST CANCER RECURRENT
     Route: 041
     Dates: start: 20110817, end: 20110907
  23. RABEPRAZOLE SODIUM [Concomitant]
     Indication: PROPHYLAXIS
     Route: 048

REACTIONS (3)
  - SEPSIS [None]
  - FEBRILE NEUTROPENIA [None]
  - NEUTROPENIA [None]
